FAERS Safety Report 4979198-2 (Version None)
Quarter: 2006Q2

REPORT INFORMATION
  Report Type: 
  Country: None (occurrence: None)
  Receive Date: 20060421
  Receipt Date: 20060324
  Transmission Date: 20061013
  Serious: Yes (Other)
  Sender: FDA-Public Use
  Company Number: BE-GLAXOSMITHKLINE-B0418956A

PATIENT
  Age: 68 Year
  Sex: Male
  Weight: 86 kg

DRUGS (2)
  1. ACTOS [Suspect]
     Route: 048
  2. AVANDIA [Suspect]

REACTIONS (2)
  - DIABETIC NEUROPATHY [None]
  - PAIN IN EXTREMITY [None]
